FAERS Safety Report 4726831-6 (Version None)
Quarter: 2005Q3

REPORT INFORMATION
  Report Type: 
  Country: None (occurrence: None)
  Receive Date: 20050726
  Receipt Date: 20050713
  Transmission Date: 20060218
  Serious: Yes (Hospitalization, Disabling)
  Sender: FDA-Public Use
  Company Number: GBR-2005-0001787

PATIENT
  Age: 88 Year
  Sex: Female

DRUGS (5)
  1. UNIPHYLLIN CONTINUS TABLETS 200MG (THEOPHYLLINE) CR TABLET [Suspect]
     Indication: ASTHMA
     Dosage: 200 MG, DAILY, ORAL
     Route: 048
     Dates: end: 20050420
  2. SPIRONOLACTONE [Concomitant]
  3. CEFACLOR [Concomitant]
  4. FUROSEMIDE [Concomitant]
  5. FUCITHALMIC (FUSIDIC ACID) [Concomitant]

REACTIONS (4)
  - EPISTAXIS [None]
  - HAEMATOMA [None]
  - THERAPEUTIC RESPONSE DECREASED [None]
  - THROMBOCYTOPENIC PURPURA [None]
